FAERS Safety Report 18250697 (Version 1)
Quarter: 2020Q3

REPORT INFORMATION
  Report Type: Report from Study
  Country: None (occurrence: FR)
  Receive Date: 20200910
  Receipt Date: 20200910
  Transmission Date: 20201103
  Serious: Yes (Hospitalization, Other)
  Sender: FDA-Public Use
  Company Number: FR-ABBVIE-19K-056-2943374-00

PATIENT
  Age: 69 Year
  Sex: Male

DRUGS (10)
  1. STALEVO 150 [Concomitant]
     Indication: PRODUCT USED FOR UNKNOWN INDICATION
     Dates: start: 20190919, end: 20190921
  2. DUODOPA [Suspect]
     Active Substance: CARBIDOPA\LEVODOPA
     Dosage: CFR (DURING A DAY) 3.7ML/H IN MORNING AND 4 ML/ H IN AFTERNOON ; MD 9ML AND ED 3ML
     Route: 050
     Dates: start: 20190921, end: 2019
  3. DUODOPA [Suspect]
     Active Substance: CARBIDOPA\LEVODOPA
     Dosage: CONTINOUS FLOW RATE (DAY)3.5ML/H IN MORNING AND 3.7 ML/H IN AFTERNOON, MORNING DOSE 7ML
     Route: 050
     Dates: start: 201910
  4. DUODOPA [Suspect]
     Active Substance: CARBIDOPA\LEVODOPA
     Dosage: MORNING DOSE: 11 ML, CONTINUOUS DOSE: 7H?11H: 4ML, 11H?22H:?4.3ML, BOLUS: 3/4 ML
     Route: 050
  5. DUODOPA [Suspect]
     Active Substance: CARBIDOPA\LEVODOPA
     Indication: PARKINSON^S DISEASE
     Dosage: CONTINOUS FLOW RATE DURING A DAY; 3.7ML/H FROM 12:00AM THEN 4ML/H AFTER 12:00AM
     Route: 050
     Dates: start: 201801, end: 20190919
  6. STALEVO 175 [Concomitant]
     Indication: PRODUCT USED FOR UNKNOWN INDICATION
     Dates: start: 20190919, end: 20190921
  7. FLUCORTAC [Concomitant]
     Active Substance: FLUDROCORTISONE ACETATE
     Indication: PRODUCT USED FOR UNKNOWN INDICATION
     Dosage: 0.5 TABLET
  8. GUTRON [Concomitant]
     Active Substance: MIDODRINE HYDROCHLORIDE
     Dosage: 3?7 A.M., 3?10 A.M. AND 4 A.M.?1 P.M.
  9. DUODOPA [Suspect]
     Active Substance: CARBIDOPA\LEVODOPA
     Dosage: MD: 9 ML, CRD: 7H?22H: 3.4ML/H, BOLUS: 3ML: IN FACT 6 OR 7
     Route: 050
  10. GUTRON [Concomitant]
     Active Substance: MIDODRINE HYDROCHLORIDE
     Indication: PRODUCT USED FOR UNKNOWN INDICATION
     Route: 065

REACTIONS (16)
  - Fall [Unknown]
  - Dyskinesia [Recovered/Resolved]
  - Vertigo [Not Recovered/Not Resolved]
  - Fatigue [Not Recovered/Not Resolved]
  - Hospitalisation [Not Recovered/Not Resolved]
  - Delirium [Unknown]
  - Agitation [Unknown]
  - Dyskinesia [Not Recovered/Not Resolved]
  - Freezing phenomenon [Unknown]
  - Device programming error [Unknown]
  - Feeling abnormal [Not Recovered/Not Resolved]
  - Hypertension [Not Recovered/Not Resolved]
  - Fatigue [Unknown]
  - Dysarthria [Not Recovered/Not Resolved]
  - Fall [Not Recovered/Not Resolved]
  - Hand fracture [Unknown]

NARRATIVE: CASE EVENT DATE: 201909
